FAERS Safety Report 4573909-6 (Version None)
Quarter: 2005Q1

REPORT INFORMATION
  Report Type: 
  Country: None (occurrence: None)
  Receive Date: 20050203
  Receipt Date: 20050128
  Transmission Date: 20050727
  Serious: Yes (Death, Life-Threatening, Hospitalization)
  Sender: FDA-Public Use
  Company Number: FRWYE378828JAN05

PATIENT
  Age: 81 Year
  Sex: Male

DRUGS (7)
  1. EFFEXOR XR [Suspect]
     Dosage: 37.5 MG 3X 1 DAY
     Route: 048
     Dates: start: 20041101, end: 20041122
  2. NOPRON (NIAPRAZINE) [Concomitant]
  3. VASTAREL           (TRIMETAZIDINE HYDROCHLORIDE) [Concomitant]
  4. ENOXOR             (ENOXACIN SEQUIHYDRATE) [Concomitant]
  5. NOCTAMID            (LORMETAZEPAM) [Concomitant]
  6. ATACAND [Concomitant]
  7. LANTUS [Concomitant]

REACTIONS (4)
  - BRAIN HERNIATION [None]
  - CEREBRAL HAEMORRHAGE [None]
  - FALL [None]
  - SUBDURAL HAEMATOMA [None]
